FAERS Safety Report 10085226 (Version 1)
Quarter: 2014Q2

REPORT INFORMATION
  Report Type: Report from Study
  Country: CN (occurrence: CN)
  Receive Date: 20140417
  Receipt Date: 20140417
  Transmission Date: 20141212
  Serious: Yes (Other)
  Sender: FDA-Public Use
  Company Number: CN-BAXTER-2014BAX019519

PATIENT
  Sex: 0

DRUGS (17)
  1. ENDOXAN 1G [Suspect]
     Indication: BONE MARROW CONDITIONING REGIMEN
     Dosage: 1.8 G/M2 ON DAY 5 AND 4
     Route: 042
  2. CYTOSINE ARABINOSIDE [Suspect]
     Indication: BONE MARROW CONDITIONING REGIMEN
     Dosage: 4 G/M2 ON DAY 10 AND 9
     Route: 042
  3. BUSULFAN [Suspect]
     Indication: BONE MARROW CONDITIONING REGIMEN
     Dosage: DAY 8, 7, AND 6
     Route: 048
  4. SEMUSTINE [Suspect]
     Indication: BONE MARROW CONDITIONING REGIMEN
     Dosage: ON DAY 3
     Route: 042
  5. ANTITHYMOCYTE IMMUNOGLOBULIN [Suspect]
     Indication: BONE MARROW CONDITIONING REGIMEN
     Dosage: ON DAY 5 TO 2
     Route: 042
  6. ANTITHYMOCYTE IMMUNOGLOBULIN [Suspect]
     Indication: STEM CELL TRANSPLANT
  7. CYCLOSPORIN A [Suspect]
     Indication: PROPHYLAXIS AGAINST GRAFT VERSUS HOST DISEASE
     Dosage: FROM DAY 9 ON DAY 10 AND 9
     Route: 042
  8. CYCLOSPORIN A [Suspect]
     Route: 048
  9. MYCOPHENOLATE MOFETIL [Suspect]
     Indication: PROPHYLAXIS AGAINST GRAFT VERSUS HOST DISEASE
     Dosage: FROM DAY 9 BEFORE TRANSPLANTATION TO DAY 30 AFTER TRANSPLANTATION, AND TAPERED HALF ON DAY +30, DISC
     Route: 048
  10. METHOTREXATE [Suspect]
     Indication: PROPHYLAXIS AGAINST GRAFT VERSUS HOST DISEASE
     Dosage: ON DAY 1
     Route: 042
  11. METHOTREXATE [Suspect]
     Dosage: ON DAYS 3,6, AND 11
     Route: 042
  12. TRIMETHOPRIM SULFAMETHOXAZOLE [Concomitant]
     Indication: ANTIBIOTIC PROPHYLAXIS
     Route: 048
  13. FLUCONAZOLE [Concomitant]
     Indication: ANTIBIOTIC PROPHYLAXIS
     Route: 048
  14. ACYCLOVIR [Concomitant]
     Indication: ANTIBIOTIC PROPHYLAXIS
     Dosage: FROM DAY -10 TO +30
     Route: 048
  15. GRANULOCYTE COLONY-STIMULATING FACTOR NOS [Concomitant]
     Indication: NEUTROPHIL COUNT
     Dosage: FROM DAY 6 AFTER TRANSPLANTATION
     Route: 058
  16. IMMUNOGLOBULIN I.V [Concomitant]
     Indication: PROPHYLAXIS
     Dosage: DAYS 1, 11, 21 AND 31 AFTER TRANSPLANTATION
     Route: 042
  17. GANCICLOVIR [Concomitant]
     Indication: PROPHYLAXIS
     Dosage: FROM DAYS -10 TO +30
     Route: 048

REACTIONS (1)
  - Graft versus host disease [Not Recovered/Not Resolved]
